FAERS Safety Report 5834118-3 (Version None)
Quarter: 2008Q3

REPORT INFORMATION
  Report Type: 
  Country: None (occurrence: None)
  Receive Date: 20080805
  Receipt Date: 20080728
  Transmission Date: 20090109
  Serious: Yes (Death)
  Sender: FDA-Public Use
  Company Number: US-GILEAD-2008-0017545

PATIENT
  Sex: Female
  Weight: 94.432 kg

DRUGS (17)
  1. LETAIRIS [Suspect]
     Indication: PULMONARY ARTERIAL HYPERTENSION
     Route: 048
     Dates: start: 20071204
  2. VIAGRA [Concomitant]
     Route: 048
  3. NORVASC [Concomitant]
     Route: 048
  4. LASIX [Concomitant]
     Route: 048
  5. ZOLOFT [Concomitant]
     Route: 048
  6. XALATAN [Concomitant]
  7. PLAVIX [Concomitant]
     Route: 048
  8. LIPITOR [Concomitant]
     Route: 048
  9. FORADIL [Concomitant]
     Route: 055
  10. SLOFED [Concomitant]
     Route: 048
  11. METFORMIN HCL [Concomitant]
     Route: 048
  12. NEXIUM [Concomitant]
     Route: 048
  13. PLAQUENIL [Concomitant]
     Route: 048
  14. PREDNISONE TAB [Concomitant]
     Route: 048
  15. SYNTHROID [Concomitant]
     Route: 048
  16. FOSAMAX [Concomitant]
     Route: 048
  17. POTASSIUM CHLORIDE [Concomitant]
     Route: 048

REACTIONS (1)
  - DEATH [None]
